FAERS Safety Report 7715708-X (Version None)
Quarter: 2011Q3

REPORT INFORMATION
  Report Type: 
  Country: None (occurrence: None)
  Receive Date: 20110829
  Receipt Date: 20110824
  Transmission Date: 20111222
  Serious: Yes (Hospitalization, Other)
  Sender: FDA-Public Use
  Company Number: BR-PFIZER INC-2011196397

PATIENT
  Age: 83 Year
  Sex: Female

DRUGS (2)
  1. ALDACTONE [Suspect]
     Dosage: UNK
     Route: 048
     Dates: start: 20080824
  2. LIPITOR [Suspect]
     Dosage: 10 MG, 1X/DAY (1 TABLET DAILY)
     Route: 048
     Dates: start: 20080824

REACTIONS (4)
  - CATARACT OPERATION [None]
  - HEARING IMPAIRED [None]
  - MACULOPATHY [None]
  - CARDIAC PACEMAKER INSERTION [None]
